FAERS Safety Report 15390349 (Version 2)
Quarter: 2018Q3

REPORT INFORMATION
  Report Type: Spontaneous
  Country: HU (occurrence: HU)
  Receive Date: 20180917
  Receipt Date: 20180926
  Transmission Date: 20181010
  Serious: Yes (Hospitalization, Other)
  Sender: FDA-Public Use
  Company Number: HU-TEVA-2018-HU-955067

PATIENT
  Age: 75 Year
  Sex: Female

DRUGS (3)
  1. PROPAFENONE. [Suspect]
     Active Substance: PROPAFENONE
     Dosage: CHRONIC THERAPY
  2. AMOXICILLIN W/CLAVULANIC ACID [Suspect]
     Active Substance: AMOXICILLIN\CLAVULANIC ACID
     Indication: ARTHROPOD STING
     Dosage: FEW DAYS THERAPY
  3. TERBINAFINE. [Suspect]
     Active Substance: TERBINAFINE
     Indication: ARTHROPOD STING
     Dosage: FEW DAYS THERAPY

REACTIONS (3)
  - Acute kidney injury [Recovered/Resolved]
  - Hyperkalaemia [Recovered/Resolved]
  - Acute hepatic failure [Recovered/Resolved]
